FAERS Safety Report 7771216-1 (Version None)
Quarter: 2011Q3

REPORT INFORMATION
  Report Type: 
  Country: None (occurrence: None)
  Receive Date: 20110922
  Receipt Date: 20110502
  Transmission Date: 20111222
  Serious: No
  Sender: FDA-Public Use
  Company Number: US-ASTRAZENECA-2011SE26423

PATIENT

DRUGS (41)
  1. CYMBALTA [Concomitant]
     Route: 048
  2. MUPIROCIN [Concomitant]
  3. ACYCLOVIR [Concomitant]
     Route: 048
  4. ADVIL LIQUI-GELS [Concomitant]
     Indication: INFLAMMATION
     Dosage: 4 (200 MG) TABLETS 3-4 TIMES PER DAY
     Route: 048
  5. NATUREMADE FLAXSEED OIL [Concomitant]
  6. MEMBER'S MARK SUPER B COMPLEX W/ C [Concomitant]
  7. AZATHIOPRINE [Concomitant]
     Indication: IMMUNOSUPPRESSION
     Route: 048
  8. OPANA ER [Concomitant]
  9. NUCYNTA [Concomitant]
     Indication: PAIN
  10. AMPHETAMINE AND DEXTROAMPHETAMINE SALTS [Concomitant]
     Indication: DISTURBANCE IN ATTENTION
     Route: 048
  11. LORAZEPAM [Concomitant]
     Indication: ANXIETY
     Route: 048
  12. AMITRIPTYLINE HCL [Concomitant]
     Indication: DEPRESSION
     Route: 048
  13. LORAZEPAM [Concomitant]
     Indication: DEPRESSION
     Route: 048
  14. ALPRAZOLAM [Concomitant]
     Indication: DEPRESSION
     Route: 048
  15. TIZANIDINE HCL [Concomitant]
     Indication: PAIN
     Route: 048
  16. METOCLOPRAMIDE [Concomitant]
     Indication: IMPAIRED GASTRIC EMPTYING
     Route: 048
  17. RX FOLIC ACID [Concomitant]
     Route: 048
  18. ASPIRIN [Concomitant]
     Indication: PROPHYLAXIS
     Route: 048
  19. VITAMIN WORLD E [Concomitant]
  20. AMITRIPTYLINE HCL [Concomitant]
     Indication: ANXIETY
     Route: 048
  21. ONDANSETRON HCL [Concomitant]
     Indication: NAUSEA
     Route: 048
  22. RANTIDINE [Concomitant]
     Indication: ABDOMINAL DISCOMFORT
  23. CETIRIZINE HCL [Concomitant]
     Route: 048
  24. ADVIL LIQUI-GELS [Concomitant]
     Indication: PAIN
     Dosage: 4 (200 MG) TABLETS 3-4 TIMES PER DAY
     Route: 048
  25. NATUREMADE ECHINACEA WHOLE HERB [Concomitant]
  26. NATURE'S BOUNTY [Concomitant]
  27. CYMBALTA [Concomitant]
     Route: 048
  28. OPANA ER [Concomitant]
     Indication: PAIN
  29. NATUREMADE MULTI PRENATAL VITAMIN [Concomitant]
  30. EQUALIONE NATURAL VITAMIN C W/ ROSE HIP [Concomitant]
  31. SEROQUEL [Suspect]
     Route: 048
  32. ALPRAZOLAM [Concomitant]
     Indication: ANXIETY
     Route: 048
  33. NATUREMADE VITAMIN D [Concomitant]
  34. NATUREMADE COQ10 [Concomitant]
  35. ALPRAZOLAM [Concomitant]
     Indication: PANIC ATTACK
     Route: 048
  36. ONDANSETRON HCL [Concomitant]
     Indication: VOMITING
     Route: 048
  37. DEXILANT [Concomitant]
     Indication: ABDOMINAL DISCOMFORT
     Route: 048
  38. TOPIRAMATE [Concomitant]
     Route: 048
  39. HYDROCHLOROL [Concomitant]
     Indication: ABDOMINAL DISTENSION
     Route: 048
  40. SCHIFF MEGARED OMEGA-3-KRILL OIL [Concomitant]
  41. SCHIFF MOVE FREE ADVANCED [Concomitant]

REACTIONS (2)
  - OFF LABEL USE [None]
  - SOMNOLENCE [None]
